FAERS Safety Report 18995930 (Version 1)
Quarter: 2021Q1

REPORT INFORMATION
  Report Type: Spontaneous
  Country: US (occurrence: US)
  Receive Date: 20210311
  Receipt Date: 20210311
  Transmission Date: 20210420
  Serious: No
  Sender: FDA-Public Use
  Company Number: US-AUROBINDO-AUR-APL-2020-013081

PATIENT
  Sex: Female

DRUGS (1)
  1. LEVOFLOXACIN INJECTION 750MG (25MG/ML) [Suspect]
     Active Substance: LEVOFLOXACIN
     Indication: PRODUCT USED FOR UNKNOWN INDICATION
     Dosage: UNK
     Route: 042

REACTIONS (4)
  - Malaise [Unknown]
  - Peripheral swelling [Unknown]
  - Swelling face [Unknown]
  - Eye swelling [Unknown]
